FAERS Safety Report 4586317-9 (Version None)
Quarter: 2005Q1

REPORT INFORMATION
  Report Type: 
  Country: None (occurrence: None)
  Receive Date: 20050217
  Receipt Date: 20041208
  Transmission Date: 20050727
  Serious: Yes (Life-Threatening, Hospitalization, Disabling)
  Sender: FDA-Public Use
  Company Number: US-MERCK-0412USA01088

PATIENT
  Age: 56 Year
  Sex: Female

DRUGS (1)
  1. VIOXX [Suspect]
     Indication: ARTHRITIS
     Route: 048
     Dates: start: 19990101, end: 20040930

REACTIONS (10)
  - ANXIETY [None]
  - BLISTER [None]
  - BLOOD PRESSURE INCREASED [None]
  - CARDIAC DISORDER [None]
  - CHEST DISCOMFORT [None]
  - DRUG INEFFECTIVE [None]
  - GLAUCOMA [None]
  - ROTATOR CUFF SYNDROME [None]
  - THERMAL BURN [None]
  - VISUAL ACUITY REDUCED [None]
